FAERS Safety Report 4868720-2 (Version None)
Quarter: 2005Q4

REPORT INFORMATION
  Report Type: 
  Country: None (occurrence: None)
  Receive Date: 20051223
  Receipt Date: 20051214
  Transmission Date: 20060501
  Serious: Yes (Hospitalization)
  Sender: FDA-Public Use
  Company Number: 2005169445

PATIENT
  Age: 11 Year
  Sex: Male
  Weight: 34.5 kg

DRUGS (2)
  1. GENOTONORM (SOMATROPIN) [Suspect]
     Indication: GROWTH HORMONE DEFICIENCY
     Dosage: (1.2 I.U., WEEKLY) SUBCUTANEOUS
     Route: 058
     Dates: start: 20040225, end: 20051113
  2. GENOTONORM (SOMATROPIN) [Suspect]
     Indication: GROWTH HORMONE DEFICIENCY
     Dosage: (1.2 I.U., WEEKLY) SUBCUTANEOUS
     Route: 058
     Dates: start: 20051130, end: 20051202

REACTIONS (4)
  - HEPATITIS [None]
  - LUNG DISORDER [None]
  - PYREXIA [None]
  - RENAL FAILURE [None]
